FAERS Safety Report 5167812-0 (Version None)
Quarter: 2006Q4

REPORT INFORMATION
  Report Type: 
  Country: None (occurrence: None)
  Receive Date: 20061208
  Receipt Date: 20061128
  Transmission Date: 20070319
  Serious: Yes (Other)
  Sender: FDA-Public Use
  Company Number: PHRM2006FR03213

PATIENT
  Age: 75 Year
  Sex: Male

DRUGS (1)
  1. NISISCO [Suspect]
     Indication: HYPERTENSION
     Dosage: 1 DF, QD
     Route: 048

REACTIONS (10)
  - BONE MARROW FAILURE [None]
  - FATIGUE [None]
  - GASTROENTERITIS [None]
  - HAEMOGLOBIN DECREASED [None]
  - LIBIDO DECREASED [None]
  - LYMPHOCYTE COUNT INCREASED [None]
  - MACROCYTOSIS [None]
  - NEUTROPHIL COUNT DECREASED [None]
  - PLATELET COUNT DECREASED [None]
  - RED BLOOD CELL COUNT DECREASED [None]
